FAERS Safety Report 7894258-4 (Version None)
Quarter: 2011Q4

REPORT INFORMATION
  Report Type: 
  Country: None (occurrence: None)
  Receive Date: 20111104
  Receipt Date: 20111028
  Transmission Date: 20120403
  Serious: Yes (Hospitalization, Other)
  Sender: FDA-Public Use
  Company Number: CA-US-EMD SERONO, INC.-7091285

PATIENT
  Sex: Female

DRUGS (5)
  1. REBIF [Suspect]
     Route: 058
     Dates: start: 20111003
  2. VITAMIN D [Concomitant]
  3. REBIF [Suspect]
     Indication: RELAPSING-REMITTING MULTIPLE SCLEROSIS
     Route: 058
     Dates: start: 20091022, end: 20111003
  4. SLEEP-EEZE [Concomitant]
     Dosage: 1-2 TABLETS
  5. CHLORAZEPAM [Concomitant]
     Dosage: 1-2 TABLETS AT BEDTIME

REACTIONS (4)
  - MALIGNANT MELANOMA [None]
  - WHITE BLOOD CELL COUNT DECREASED [None]
  - COLORECTAL CANCER [None]
  - PLATELET COUNT DECREASED [None]
